FAERS Safety Report 10133555 (Version 3)
Quarter: 2014Q3

REPORT INFORMATION
  Report Type: Spontaneous
  Country: IT (occurrence: IT)
  Receive Date: 20140428
  Receipt Date: 20140721
  Transmission Date: 20150326
  Serious: Yes (Life-Threatening)
  Sender: FDA-Public Use
  Company Number: IT-SA-2014SA050408

PATIENT
  Age: 45 Year
  Sex: Female

DRUGS (2)
  1. LASIX [Suspect]
     Active Substance: FUROSEMIDE
     Indication: SUICIDE ATTEMPT
     Route: 048
     Dates: start: 20130625, end: 20130625
  2. ENTACT [Suspect]
     Active Substance: ESCITALOPRAM OXALATE
     Indication: SUICIDE ATTEMPT
     Route: 048
     Dates: start: 20130625, end: 20130625

REACTIONS (3)
  - Respiratory arrest [Recovering/Resolving]
  - Drug abuse [Unknown]
  - Loss of consciousness [Recovering/Resolving]

NARRATIVE: CASE EVENT DATE: 20130625
